FAERS Safety Report 12651680 (Version 10)
Quarter: 2016Q4

REPORT INFORMATION
  Report Type: Spontaneous
  Country: JP (occurrence: JP)
  Receive Date: 20160815
  Receipt Date: 20161228
  Transmission Date: 20170207
  Serious: Yes (Death, Hospitalization, Other)
  Sender: FDA-Public Use
  Company Number: JP-PFIZER INC-2015470113

PATIENT
  Age: 90 Year
  Sex: Male
  Weight: 58 kg

DRUGS (10)
  1. LIMAPROST ALFADEX [Suspect]
     Active Substance: LIMAPROST
     Indication: LUMBAR SPINAL STENOSIS
     Dosage: 5 UG, 3X/DAY
     Route: 048
     Dates: end: 20151007
  2. AZOSEMIDE [Suspect]
     Active Substance: AZOSEMIDE
     Indication: OEDEMA
     Dosage: 15 MG, 1X/DAY
     Route: 048
     Dates: end: 20151007
  3. ALLOPURINOL. [Suspect]
     Active Substance: ALLOPURINOL
     Indication: HYPERURICAEMIA
     Dosage: 100 MG, 2X/DAY
     Route: 048
     Dates: end: 20151007
  4. AMLODIPINE BESILATE [Suspect]
     Active Substance: AMLODIPINE BESYLATE
     Indication: HYPERTENSION
     Dosage: 5 MG, 1X/DAY
     Route: 048
     Dates: end: 20151007
  5. MAGNESIUM OXIDE. [Suspect]
     Active Substance: MAGNESIUM OXIDE
     Indication: CONSTIPATION
     Dosage: 500 MG, 2X/DAY
     Route: 048
     Dates: end: 20151007
  6. PREGABALIN. [Suspect]
     Active Substance: PREGABALIN
     Indication: LUMBAR SPINAL STENOSIS
     Dosage: 150 MG, 2X/DAY
     Route: 048
     Dates: end: 20151007
  7. CILOSTAZOL. [Suspect]
     Active Substance: CILOSTAZOL
     Indication: LUMBAR SPINAL STENOSIS
     Dosage: 50 MG, 2X/DAY
     Route: 048
     Dates: end: 20151007
  8. ELIQUIS [Suspect]
     Active Substance: APIXABAN
     Indication: CEREBROVASCULAR ACCIDENT PROPHYLAXIS
     Dosage: 2.5 MG, 2X/DAY
     Route: 048
     Dates: start: 20151001
  9. WARFARIN POTASSIUM [Suspect]
     Active Substance: WARFARIN POTASSIUM
     Indication: ATRIAL FIBRILLATION
     Dosage: 2 MG, 1X/DAY
     Route: 048
     Dates: end: 20151007
  10. MECOBALAMIN [Suspect]
     Active Substance: METHYLCOBALAMIN
     Indication: LUMBAR SPINAL STENOSIS
     Dosage: 500 UG, 3X/DAY
     Route: 048
     Dates: end: 20151007

REACTIONS (10)
  - Atrial fibrillation [Fatal]
  - International normalised ratio increased [Recovering/Resolving]
  - Right ventricular failure [Unknown]
  - Haematemesis [Fatal]
  - Idiopathic interstitial pneumonia [Not Recovered/Not Resolved]
  - Ear haemorrhage [Unknown]
  - Drug prescribing error [Fatal]
  - Cardiac failure congestive [Unknown]
  - Haemorrhage subcutaneous [Not Recovered/Not Resolved]
  - Cardiac valve disease [Fatal]

NARRATIVE: CASE EVENT DATE: 20150824
